FAERS Safety Report 22328081 (Version 1)
Quarter: 2023Q2

REPORT INFORMATION
  Report Type: Spontaneous
  Country: SE (occurrence: SE)
  Receive Date: 20230516
  Receipt Date: 20230516
  Transmission Date: 20230722
  Serious: Yes (Other)
  Sender: FDA-Public Use
  Company Number: None

PATIENT
  Age: 42 Year
  Sex: Female
  Weight: 72 kg

DRUGS (1)
  1. PRIVIGEN [Suspect]
     Active Substance: HUMAN IMMUNOGLOBULIN G
     Indication: Immunodeficiency
     Dosage: UNK UNK, Q3W
     Route: 065
     Dates: start: 2017

REACTIONS (3)
  - Throat tightness [Recovered/Resolved]
  - Chills [Recovered/Resolved]
  - Dyspnoea [Recovered/Resolved]

NARRATIVE: CASE EVENT DATE: 20210319
